FAERS Safety Report 5738894-X (Version None)
Quarter: 2008Q2

REPORT INFORMATION
  Report Type: 
  Country: None (occurrence: None)
  Receive Date: 20080515
  Receipt Date: 20080507
  Transmission Date: 20081010
  Serious: Yes (Other)
  Sender: FDA-Public Use
  Company Number: PHHY2008JP07363

PATIENT
  Age: 75 Year
  Sex: Male

DRUGS (1)
  1. SLOW-K [Suspect]
     Route: 048

REACTIONS (2)
  - CHROMATURIA [None]
  - URINARY TRACT INFECTION [None]
